FAERS Safety Report 9295522 (Version 1)
Quarter: 2013Q2

REPORT INFORMATION
  Report Type: Spontaneous
  Country: US (occurrence: None)
  Receive Date: 20130516
  Receipt Date: 20130516
  Transmission Date: 20140414
  Serious: No
  Sender: FDA-Public Use
  Company Number: None

PATIENT
  Age: 65 Year
  Sex: Male
  Weight: 88.9 kg

DRUGS (4)
  1. PACLITAXEL (TAXOL) [Suspect]
  2. BEVACIZUMAB (RHUMAB VEGF) (704865) [Suspect]
  3. CARBOPLATIN [Suspect]
  4. CETUXIMAB (ERBITUX) (714692) [Suspect]

REACTIONS (3)
  - Bronchospasm [None]
  - Back pain [None]
  - Flushing [None]
